FAERS Safety Report 12550218 (Version 1)
Quarter: 2016Q3

REPORT INFORMATION
  Report Type: Spontaneous
  Country: GB (occurrence: GB)
  Receive Date: 20160712
  Receipt Date: 20160712
  Transmission Date: 20161109
  Serious: Yes (Life-Threatening, Hospitalization)
  Sender: FDA-Public Use
  Company Number: GB-WATSON-2016-15023

PATIENT
  Age: 28 Year
  Sex: Female

DRUGS (5)
  1. VITAMIN B COMPOUND                 /00171501/ [Concomitant]
     Indication: PRODUCT USED FOR UNKNOWN INDICATION
     Dosage: 1 DF, DAILY
     Route: 065
  2. DAPSONE (UNKNOWN) [Suspect]
     Active Substance: DAPSONE
     Indication: PRODUCT USED FOR UNKNOWN INDICATION
     Dosage: 100 MG, DAILY
     Route: 048
  3. HYDROXYCHLOROQUINE (UNKNOWN) [Suspect]
     Active Substance: HYDROXYCHLOROQUINE
     Indication: PRODUCT USED FOR UNKNOWN INDICATION
     Dosage: 400 MG, DAILY (PRESCRIBED 200MG TWICE A DAY BUT PATIENT WAS TAKING 400MG ONCE A DAY.)
     Route: 048
  4. FISH OIL [Concomitant]
     Active Substance: FISH OIL
     Indication: PRODUCT USED FOR UNKNOWN INDICATION
     Dosage: 1 DF, DAILY
     Route: 048
  5. METHOTREXATE. [Concomitant]
     Active Substance: METHOTREXATE
     Indication: PRODUCT USED FOR UNKNOWN INDICATION
     Dosage: UNK UNK, UNKNOWN (THIS HAD BEEN DISCONTINUED 2 WEEKS PRIOR TO ADMISSION.)
     Route: 065
     Dates: end: 20160516

REACTIONS (5)
  - Pain [Unknown]
  - Sepsis [Not Recovered/Not Resolved]
  - Pyrexia [Unknown]
  - Drug-induced liver injury [Not Recovered/Not Resolved]
  - Pancytopenia [Not Recovered/Not Resolved]

NARRATIVE: CASE EVENT DATE: 20160601
